FAERS Safety Report 12553994 (Version 2)
Quarter: 2017Q2

REPORT INFORMATION
  Report Type: Spontaneous
  Country: JP (occurrence: JP)
  Receive Date: 20160713
  Receipt Date: 20170619
  Transmission Date: 20170830
  Serious: Yes (Death, Disabling)
  Sender: FDA-Public Use
  Company Number: JP-SA-2016SA124304

PATIENT
  Age: 53 Year
  Sex: Male

DRUGS (1)
  1. PLAVIX [Suspect]
     Active Substance: CLOPIDOGREL BISULFATE
     Route: 048
     Dates: start: 201407, end: 201407

REACTIONS (3)
  - Subdural haematoma [Fatal]
  - Subarachnoid haemorrhage [Fatal]
  - Cerebral haematoma [Fatal]
